FAERS Safety Report 5370849-X (Version None)
Quarter: 2007Q2

REPORT INFORMATION
  Report Type: 
  Country: None (occurrence: None)
  Receive Date: 20070618
  Receipt Date: 20070103
  Transmission Date: 20071010
  Serious: Yes (Hospitalization)
  Sender: FDA-Public Use
  Company Number: PHEH2006US15522

PATIENT
  Age: 52 Year
  Sex: Female

DRUGS (1)
  1. GLEEVEC [Suspect]
     Indication: LEUKAEMIA
     Dosage: 400 MG, QD, ORAL
     Route: 048
     Dates: start: 20020101

REACTIONS (6)
  - ALOPECIA [None]
  - FATIGUE [None]
  - NAUSEA [None]
  - VISUAL DISTURBANCE [None]
  - VOMITING [None]
  - WEIGHT INCREASED [None]
